FAERS Safety Report 23642087 (Version 1)
Quarter: 2024Q1

REPORT INFORMATION
  Report Type: Spontaneous
  Country: CA (occurrence: CA)
  Receive Date: 20240318
  Receipt Date: 20240318
  Transmission Date: 20240410
  Serious: Yes (Other)
  Sender: FDA-Public Use
  Company Number: None

PATIENT
  Sex: Male

DRUGS (4)
  1. OLANZAPINE [Suspect]
     Active Substance: OLANZAPINE
     Indication: Parkinson^s disease psychosis
     Dosage: AT BEDTIME (QHS)?DAILY DOSE: 2.5 MILLIGRAM
  2. OLANZAPINE [Suspect]
     Active Substance: OLANZAPINE
     Indication: Parkinson^s disease psychosis
     Dosage: AT BEDTIME (QHS)?DAILY DOSE: 1.25 MILLIGRAM
  3. QUETIAPINE [Suspect]
     Active Substance: QUETIAPINE
     Dosage: 200 MG QHS?DAILY DOSE: 200 MILLIGRAM
  4. QUETIAPINE [Suspect]
     Active Substance: QUETIAPINE
     Dosage: 100 MG QHS?DAILY DOSE: 100 MILLIGRAM

REACTIONS (1)
  - Extrapyramidal disorder [Not Recovered/Not Resolved]
